FAERS Safety Report 4852044-3 (Version None)
Quarter: 2005Q4

REPORT INFORMATION
  Report Type: 
  Country: None (occurrence: None)
  Receive Date: 20051213
  Receipt Date: 20051201
  Transmission Date: 20060501
  Serious: Yes (Hospitalization)
  Sender: FDA-Public Use
  Company Number: AT-ROCHE-427410

PATIENT
  Age: 19 Year
  Sex: Male

DRUGS (15)
  1. DACLIZUMAB [Suspect]
     Route: 042
     Dates: start: 20030219, end: 20030219
  2. DACLIZUMAB [Suspect]
     Route: 042
     Dates: start: 20030304, end: 20030414
  3. CELLCEPT [Suspect]
     Route: 048
     Dates: start: 20030219, end: 20030303
  4. CELLCEPT [Suspect]
     Route: 048
     Dates: start: 20040315, end: 20040315
  5. SIROLIMUS [Suspect]
     Route: 048
     Dates: start: 20030219, end: 20030422
  6. TACROLIMUS [Suspect]
     Route: 048
     Dates: start: 20030423, end: 20040303
  7. PREDNISOLONE [Suspect]
     Route: 048
     Dates: start: 20030215
  8. BAYPRESS [Concomitant]
     Route: 048
     Dates: start: 20030215
  9. SELOKEN [Concomitant]
     Route: 048
     Dates: start: 20030415
  10. THROMBO ASS [Concomitant]
     Route: 048
     Dates: start: 20030315
  11. COZAAR [Concomitant]
     Route: 048
     Dates: start: 20030415
  12. PANTOPRAZOLE SODIUM [Concomitant]
     Route: 048
     Dates: start: 20030215
  13. COTRIM [Concomitant]
     Route: 048
     Dates: start: 20030215
  14. CIPROXIN [Concomitant]
     Route: 048
     Dates: start: 20040215
  15. ROCALTROL [Concomitant]
     Route: 048
     Dates: start: 20040215

REACTIONS (2)
  - T-CELL LYMPHOMA [None]
  - TONSILLITIS [None]
